FAERS Safety Report 4466069-3 (Version None)
Quarter: 2004Q3

REPORT INFORMATION
  Report Type: 
  Country: None (occurrence: None)
  Receive Date: 20040930
  Receipt Date: 20040930
  Transmission Date: 20050211
  Serious: Yes (Other)
  Sender: FDA-Public Use
  Company Number: None

PATIENT
  Age: 50 Year
  Sex: Female
  Weight: 69.8539 kg

DRUGS (3)
  1. NEURONTIN [Suspect]
     Indication: HYPOAESTHESIA
     Dosage: 1 CAPSUL  A NIGHT  ORAL
     Route: 048
     Dates: start: 20040914, end: 20040921
  2. NEURONTIN [Suspect]
     Indication: PAIN IN EXTREMITY
     Dosage: 1 CAPSUL  A NIGHT  ORAL
     Route: 048
     Dates: start: 20040914, end: 20040921
  3. NEURONTIN [Suspect]
     Indication: PARAESTHESIA
     Dosage: 1 CAPSUL  A NIGHT  ORAL
     Route: 048
     Dates: start: 20040914, end: 20040921

REACTIONS (15)
  - AGGRESSION [None]
  - AMNESIA [None]
  - ANXIETY [None]
  - CRYING [None]
  - DISCOMFORT [None]
  - EMOTIONAL DISORDER [None]
  - FAMILY STRESS [None]
  - HALLUCINATION [None]
  - HOSTILITY [None]
  - HYPERSOMNIA [None]
  - IMPAIRED WORK ABILITY [None]
  - INSOMNIA [None]
  - MOOD ALTERED [None]
  - PARANOIA [None]
  - SUSPICIOUSNESS [None]
